FAERS Safety Report 8738601 (Version 2)
Quarter: 2012Q4

REPORT INFORMATION
  Report Type: 
  Country: GB (occurrence: GB)
  Receive Date: 20120823
  Receipt Date: 20121108
  Transmission Date: 20130627
  Serious: Yes (Other)
  Sender: FDA-Public Use
  Company Number: PHFR2012GB004610

PATIENT
  Age: 47 Year
  Sex: Female

DRUGS (1)
  1. CLOZARIL [Suspect]
     Indication: SCHIZOPHRENIA
     Dosage: 500 mg, daily
     Route: 048
     Dates: start: 20040510

REACTIONS (3)
  - Oral infection [Unknown]
  - Swelling face [Unknown]
  - Toothache [Recovering/Resolving]
